FAERS Safety Report 8592492-1 (Version None)
Quarter: 2012Q3

REPORT INFORMATION
  Report Type: 
  Country: None (occurrence: None)
  Receive Date: 20120814
  Receipt Date: 20120724
  Transmission Date: 20120928
  Serious: Yes (Hospitalization)
  Sender: FDA-Public Use
  Company Number: JP-009507513-2012SP030757

PATIENT

DRUGS (8)
  1. URSO 250 [Concomitant]
     Indication: HEPATITIS C
     Dosage: FORMULATION: POR
     Route: 048
  2. URSO 250 [Concomitant]
     Route: 048
  3. TELAVIC [Suspect]
     Indication: HEPATITIS C
     Route: 048
     Dates: start: 20120411, end: 20120413
  4. REBETOL [Suspect]
     Indication: HEPATITIS C
     Dosage: 400 MG, QD
     Route: 048
     Dates: start: 20120411, end: 20120415
  5. TELAVIC [Suspect]
     Route: 048
     Dates: start: 20120414, end: 20120415
  6. ANTIVIRAL (UNSPECIFIED) [Suspect]
     Indication: HEPATITIS C
     Dosage: 2250 MG, QD
     Route: 048
     Dates: start: 20120411, end: 20120413
  7. PEG-INTRON [Suspect]
     Indication: HEPATITIS C
     Dosage: 0.76G/KG/WEEK
     Route: 058
     Dates: start: 20120411
  8. ANTIVIRAL (UNSPECIFIED) [Suspect]
     Dosage: 1500 MG, QD
     Route: 048
     Dates: start: 20120414, end: 20120415

REACTIONS (1)
  - BLOOD CREATININE INCREASED [None]
